FAERS Safety Report 5684160-0 (Version None)
Quarter: 2008Q1

REPORT INFORMATION
  Report Type: 
  Country: None (occurrence: None)
  Receive Date: 20080328
  Receipt Date: 20070411
  Transmission Date: 20080703
  Serious: No
  Sender: FDA-Public Use
  Company Number: US-AMGEN-KDL219234

PATIENT
  Sex: Male

DRUGS (2)
  1. NEULASTA [Suspect]
     Indication: PERIPHERAL BLOOD STEM CELL APHERESIS
  2. UNSPECIFIED MEDICATION [Concomitant]

REACTIONS (2)
  - DIZZINESS [None]
  - MOBILITY DECREASED [None]
